FAERS Safety Report 4334206-7 (Version None)
Quarter: 2004Q2

REPORT INFORMATION
  Report Type: 
  Country: None (occurrence: None)
  Receive Date: 20040402
  Receipt Date: 20040322
  Transmission Date: 20050107
  Serious: Yes (Other)
  Sender: FDA-Public Use
  Company Number: K200400412

PATIENT
  Age: 59 Year
  Sex: Male

DRUGS (3)
  1. ALTACE [Suspect]
     Indication: HYPERTENSION
     Dosage: 10 MG, QD, ORAL
     Route: 048
     Dates: start: 20030301, end: 20031101
  2. METFORMIN HCL [Concomitant]
  3. STATIN (NOS) [Concomitant]

REACTIONS (2)
  - BACK PAIN [None]
  - RETROPERITONEAL FIBROSIS [None]
